FAERS Safety Report 24119964 (Version 1)
Quarter: 2024Q3

REPORT INFORMATION
  Report Type: Spontaneous
  Country: FR (occurrence: FR)
  Receive Date: 20240722
  Receipt Date: 20240722
  Transmission Date: 20241016
  Serious: Yes (Other)
  Sender: SANOFI AVENTIS
  Company Number: FR-SA-2024SA208925

PATIENT
  Age: 30 Year
  Sex: Female

DRUGS (23)
  1. FLUDARABINE PHOSPHATE [Suspect]
     Active Substance: FLUDARABINE PHOSPHATE
     Indication: Sickle cell disease
     Dosage: 40 MG/M2, QD (AT DAY -61, -60, -59, -58, AND -57)
  2. FLUDARABINE PHOSPHATE [Suspect]
     Active Substance: FLUDARABINE PHOSPHATE
     Dosage: 40 MG/KG, QD 40 MG/M2, QD (AT DAY -8, -7, -6, -5 AND -4) (RT-MAC)
  3. ANTI-THYMOCYTE GLOBULIN (RABBIT) NOS [Suspect]
     Active Substance: LAPINE T-LYMPHOCYTE IMMUNE GLOBULIN
     Indication: Sickle cell disease
     Dosage: 1.5 MG/KG, QD (AT DAY -32, -31 AND -30)
  4. ANTI-THYMOCYTE GLOBULIN (RABBIT) NOS [Suspect]
     Active Substance: LAPINE T-LYMPHOCYTE IMMUNE GLOBULIN
     Dosage: 1.5 MG/KG QD (AT DAYS -12, -11),
  5. DEXAMETHASONE [Suspect]
     Active Substance: DEXAMETHASONE
     Indication: Sickle cell disease
     Dosage: 25 MG/M2, QD (AT DAY -61, -60, -59, -58, AND -57 )
  6. DEXAMETHASONE [Suspect]
     Active Substance: DEXAMETHASONE
     Dosage: 25 MG/M2, QD (AT DAY -33, -32, -31, -30 AND -29) )
  7. CYCLOPHOSPHAMIDE [Suspect]
     Active Substance: CYCLOPHOSPHAMIDE
     Indication: Sickle cell disease
     Dosage: 500 MG/M2 QD (AT DAY -33)
  8. CYCLOPHOSPHAMIDE [Suspect]
     Active Substance: CYCLOPHOSPHAMIDE
     Indication: Prophylaxis against graft versus host disease
     Dosage: 50 MG/KG, QD (ON DAYS +3 AND +4 POST TRANSALPLANTATION)
  9. RITUXIMAB [Suspect]
     Active Substance: RITUXIMAB
     Indication: Sickle cell disease
     Dosage: 375 MG/M2, QD (AT DAU -62)
  10. VELCADE [Suspect]
     Active Substance: BORTEZOMIB
     Indication: Sickle cell disease
     Dosage: 1.3 MG/M2 QD AT DAY -51, -58, -55 AND -51
  11. CYCLOSPORINE [Suspect]
     Active Substance: CYCLOSPORINE
     Indication: Prophylaxis against graft versus host disease
     Dosage: 1.5 MG/KG, BID (FROM DAY +5)
  12. MYCOPHENOLATE MOFETIL [Suspect]
     Active Substance: MYCOPHENOLATE MOFETIL
     Indication: Prophylaxis against graft versus host disease
     Dosage: 15 MG/KG, TID (FROM DAY +5)
  13. MYCOPHENOLATE MOFETIL [Suspect]
     Active Substance: MYCOPHENOLATE MOFETIL
     Dosage: TAPERED AFTER DAY +70
  14. BUSULFAN [Suspect]
     Active Substance: BUSULFAN
     Indication: Sickle cell disease
     Dosage: 110 MG/M2 (AT DAY -8)
  15. BUSULFAN [Suspect]
     Active Substance: BUSULFAN
     Dosage: DOSE ADJUSMENTS ON DAYS-6 TO -4 UNK
  16. PENICILLIN [Concomitant]
     Active Substance: PENICILLIN
     Indication: Supportive care
     Dosage: STARTED WITH THE INITIATION OF PTIS
  17. URSODIOL [Concomitant]
     Active Substance: URSODIOL
     Indication: Prophylaxis
     Dosage: UNK
  18. URSODIOL [Concomitant]
     Active Substance: URSODIOL
     Indication: Hepatic iron overload
  19. VALACYCLOVIR HYDROCHLORIDE [Concomitant]
     Active Substance: VALACYCLOVIR HYDROCHLORIDE
     Indication: Supportive care
     Dosage: STARTED WITH THE INITIATION OF PTIS
  20. SULFAMETHOXAZOLE\TRIMETHOPRIM [Concomitant]
     Active Substance: SULFAMETHOXAZOLE\TRIMETHOPRIM
     Indication: Supportive care
     Dosage: STARTED WITH THE INITIATION OF PTIS
  21. FLUCONAZOLE [Concomitant]
     Active Substance: FLUCONAZOLE
     Indication: Supportive care
     Dosage: STARTED WITH THE INITIATION OF PTIS
  22. HEPARIN [Concomitant]
     Active Substance: HEPARIN SODIUM
     Indication: Prophylaxis
     Dosage: LOW DOSE
  23. LEVETIRACETAM [Concomitant]
     Active Substance: LEVETIRACETAM
     Indication: Seizure prophylaxis
     Dosage: UNK

REACTIONS (7)
  - Colitis [Unknown]
  - Pyelonephritis [Recovered/Resolved]
  - Mucosal inflammation [Unknown]
  - Cytomegalovirus infection [Recovered/Resolved]
  - Hypertransaminasaemia [Unknown]
  - COVID-19 [Unknown]
  - Off label use [Unknown]

NARRATIVE: CASE EVENT DATE: 20220101
